FAERS Safety Report 14754336 (Version 2)
Quarter: 2018Q2

REPORT INFORMATION
  Report Type: Spontaneous
  Country: JP (occurrence: JP)
  Receive Date: 20180412
  Receipt Date: 20180416
  Transmission Date: 20180711
  Serious: Yes (Hospitalization, Other)
  Sender: FDA-Public Use
  Company Number: JP-AMGEN-JPNSP2018050134

PATIENT
  Age: 5 Decade
  Sex: Male

DRUGS (7)
  1. G-LASTA [Suspect]
     Active Substance: PEGFILGRASTIM
     Indication: COLONY STIMULATING FACTOR PROPHYLAXIS
     Dosage: 3.6 MG, UNK
     Route: 058
     Dates: start: 20180321, end: 20180321
  2. ETOPOSIDE. [Concomitant]
     Active Substance: ETOPOSIDE
     Indication: TESTIS CANCER
     Dosage: UNK
     Route: 041
     Dates: start: 20180320, end: 20180324
  3. GRAN [Concomitant]
     Active Substance: FILGRASTIM
     Dosage: 150 MUG, UNK
     Route: 058
     Dates: start: 20180329, end: 20180329
  4. GRAN [Concomitant]
     Active Substance: FILGRASTIM
     Dosage: 300 MUG, UNK
     Route: 058
     Dates: start: 20180330, end: 20180330
  5. IFOSFAMIDE. [Concomitant]
     Active Substance: IFOSFAMIDE
     Indication: TESTIS CANCER
     Dosage: UNK
     Route: 041
     Dates: start: 20180320, end: 20180324
  6. CISPLATIN. [Concomitant]
     Active Substance: CISPLATIN
     Indication: TESTIS CANCER
     Dosage: UNK
     Route: 041
     Dates: start: 20180320, end: 20180324
  7. GRAN [Concomitant]
     Active Substance: FILGRASTIM
     Dosage: 75 MUG, UNK
     Route: 058
     Dates: start: 20180327, end: 20180328

REACTIONS (4)
  - Off label use [Unknown]
  - White blood cell count decreased [Recovered/Resolved]
  - Colony stimulating factor therapy [Unknown]
  - Chemotherapy [Unknown]

NARRATIVE: CASE EVENT DATE: 20180327
